FAERS Safety Report 23685834 (Version 1)
Quarter: 2024Q1

REPORT INFORMATION
  Report Type: Spontaneous
  Country: US (occurrence: US)
  Receive Date: 20240329
  Receipt Date: 20240329
  Transmission Date: 20240410
  Serious: No
  Sender: FDA-Public Use
  Company Number: US-ABBVIE-5694206

PATIENT

DRUGS (2)
  1. ARMOUR THYROID [Suspect]
     Active Substance: THYROID, PORCINE
     Indication: Hypothyroidism
     Dosage: 90MG AND 15MG?STRENGTH: 15 MILLIGRAM
     Route: 048
  2. ARMOUR THYROID [Suspect]
     Active Substance: THYROID, PORCINE
     Indication: Hypothyroidism
     Dosage: 90MG AND TWO 15MG?STRENGTH: 15 MILLIGRAM
     Route: 048

REACTIONS (2)
  - Blood pressure increased [Unknown]
  - Feeling jittery [Unknown]
